FAERS Safety Report 23727978 (Version 1)
Quarter: 2024Q2

REPORT INFORMATION
  Report Type: Spontaneous
  Country: US (occurrence: None)
  Receive Date: 20240409
  Receipt Date: 20240409
  Transmission Date: 20240716
  Serious: No
  Sender: FDA-Public Use
  Company Number: None

PATIENT
  Age: 59 Year
  Sex: Female
  Weight: 51.75 kg

DRUGS (2)
  1. TOBRAMYCIN [Suspect]
     Active Substance: TOBRAMYCIN\TOBRAMYCIN SULFATE
     Indication: Eye injury
     Dosage: OTHER QUANTITY : 1 DROP(S);?OTHER FREQUENCY : 1 DROP EVERY 2 HOU;?
     Route: 047
     Dates: start: 20240401, end: 20240405
  2. ATENOLOL [Concomitant]
     Active Substance: ATENOLOL

REACTIONS (2)
  - Rash [None]
  - Blister [None]

NARRATIVE: CASE EVENT DATE: 20240407
